FAERS Safety Report 18202813 (Version 1)
Quarter: 2020Q3

REPORT INFORMATION
  Report Type: Spontaneous
  Country: CN (occurrence: CN)
  Receive Date: 20200827
  Receipt Date: 20200827
  Transmission Date: 20201103
  Serious: Yes (Other)
  Sender: FDA-Public Use
  Company Number: CN-PFIZER INC-2020330047

PATIENT
  Age: 22 Year
  Sex: Female
  Weight: 78 kg

DRUGS (2)
  1. OXYTOCIN. [Concomitant]
     Active Substance: OXYTOCIN
     Indication: POSTPARTUM HAEMORRHAGE
     Dosage: 10 IU, 1X/DAY
     Route: 041
     Dates: start: 20200811, end: 20200811
  2. CARBOPROST TROMETAMOL [Suspect]
     Active Substance: CARBOPROST TROMETHAMINE
     Indication: UTERINE HYPOTONUS
     Dosage: 250 UG, 1X/DAY
     Route: 043
     Dates: start: 20200811, end: 20200811

REACTIONS (4)
  - Dizziness [Recovered/Resolved]
  - Chest discomfort [Recovered/Resolved]
  - Hypersensitivity [Recovered/Resolved]
  - Vomiting [Recovered/Resolved]

NARRATIVE: CASE EVENT DATE: 20200811
